FAERS Safety Report 20537199 (Version 2)
Quarter: 2022Q2

REPORT INFORMATION
  Report Type: Spontaneous
  Country: IL (occurrence: IL)
  Receive Date: 20220302
  Receipt Date: 20220406
  Transmission Date: 20220720
  Serious: No
  Sender: FDA-Public Use
  Company Number: IL-SA-SAC20220224001387

PATIENT
  Sex: Male

DRUGS (1)
  1. DUPIXENT [Suspect]
     Active Substance: DUPILUMAB
     Indication: Asthma
     Dosage: UNK

REACTIONS (3)
  - Infection [Not Recovered/Not Resolved]
  - Herpes simplex [Not Recovered/Not Resolved]
  - Herpes zoster [Not Recovered/Not Resolved]
